FAERS Safety Report 5144987-0 (Version None)
Quarter: 2006Q4

REPORT INFORMATION
  Report Type: 
  Country: None (occurrence: None)
  Receive Date: 20061107
  Receipt Date: 20061027
  Transmission Date: 20070319
  Serious: Yes (Disabling)
  Sender: FDA-Public Use
  Company Number: GB-BAYER-200611346BNE

PATIENT
  Age: 76 Year
  Sex: Female
  Weight: 67 kg

DRUGS (1)
  1. CIPROFLOXACIN [Suspect]
     Indication: PROPHYLAXIS
     Dosage: UNIT DOSE: 250 MG
     Route: 048
     Dates: start: 20060927, end: 20061002

REACTIONS (3)
  - ANORECTAL DISORDER [None]
  - PRURITUS ANI [None]
  - SWELLING [None]
